FAERS Safety Report 17050874 (Version 2)
Quarter: 2019Q4

REPORT INFORMATION
  Report Type: Report from Study
  Country: JP (occurrence: JP)
  Receive Date: 20191120
  Receipt Date: 20191227
  Transmission Date: 20200122
  Serious: No
  Sender: FDA-Public Use
  Company Number: JP-SAKK-2019SA315763AA

PATIENT
  Age: 69 Year
  Sex: Female
  Weight: 50.7 kg

DRUGS (39)
  1. AFLIBERCEPT [Suspect]
     Active Substance: AFLIBERCEPT
     Dosage: 4 MG/KG, QOW
     Route: 041
     Dates: start: 20190208, end: 20190322
  2. LEUCOVORIN [CALCIUM FOLINATE] [Concomitant]
     Active Substance: LEUCOVORIN
     Dosage: 200 MG/M2, QOW
     Route: 065
     Dates: start: 20190208, end: 20190322
  3. LEUCOVORIN [CALCIUM FOLINATE] [Concomitant]
     Active Substance: LEUCOVORIN
     Dosage: 200 MG/M2, QOW
     Route: 065
     Dates: start: 20190412, end: 20190607
  4. LEUCOVORIN [CALCIUM FOLINATE] [Concomitant]
     Active Substance: LEUCOVORIN
     Dosage: 200 MG/M2, 1X
     Route: 065
     Dates: start: 20190628, end: 20190628
  5. 5-FU [FLUOROURACIL] [Concomitant]
     Active Substance: FLUOROURACIL
     Dosage: 400 MG/M2, 1X
     Route: 040
     Dates: start: 20190628, end: 20190628
  6. LEUCOVORIN [CALCIUM FOLINATE] [Concomitant]
     Active Substance: LEUCOVORIN
     Dosage: 200 MG/M2, Q3W
     Route: 065
     Dates: start: 20191101
  7. IRINOTECAN HYDROCHLORIDE. [Concomitant]
     Active Substance: IRINOTECAN HYDROCHLORIDE
     Dosage: 120 MG/M2, 1X
     Route: 065
     Dates: start: 20190628, end: 20190628
  8. 5-FU [FLUOROURACIL] [Concomitant]
     Active Substance: FLUOROURACIL
     Dosage: 400 MG/M2, QOW
     Route: 040
     Dates: start: 20190208, end: 20190322
  9. 5-FU [FLUOROURACIL] [Concomitant]
     Active Substance: FLUOROURACIL
     Dosage: 2400 MG/M2, QOW
     Route: 041
     Dates: start: 20190719, end: 20190830
  10. 5-FU [FLUOROURACIL] [Concomitant]
     Active Substance: FLUOROURACIL
     Dosage: 2400 MG/M2, 1X
     Route: 041
     Dates: start: 20191018, end: 20191018
  11. AFLIBERCEPT [Suspect]
     Active Substance: AFLIBERCEPT
     Indication: COLON CANCER
     Dosage: 4 MG/KG, QOW
     Route: 041
     Dates: start: 20190104, end: 20190118
  12. IRINOTECAN HYDROCHLORIDE. [Concomitant]
     Active Substance: IRINOTECAN HYDROCHLORIDE
     Indication: COLON CANCER
     Dosage: 150 MG/M2, 1X
     Route: 065
     Dates: start: 20181215, end: 20181215
  13. IRINOTECAN HYDROCHLORIDE. [Concomitant]
     Active Substance: IRINOTECAN HYDROCHLORIDE
     Dosage: 120 MG/M2, QOW
     Route: 065
     Dates: start: 20190208, end: 20190322
  14. 5-FU [FLUOROURACIL] [Concomitant]
     Active Substance: FLUOROURACIL
     Dosage: 400 MG/M2, Q3W
     Route: 040
     Dates: start: 20191101
  15. IRINOTECAN HYDROCHLORIDE. [Concomitant]
     Active Substance: IRINOTECAN HYDROCHLORIDE
     Dosage: 120 MG/M2, Q3W
     Route: 065
     Dates: start: 20191101
  16. 5-FU [FLUOROURACIL] [Concomitant]
     Active Substance: FLUOROURACIL
     Dosage: 400 MG/M2, 1X
     Route: 040
     Dates: start: 20190924, end: 20190924
  17. 5-FU [FLUOROURACIL] [Concomitant]
     Active Substance: FLUOROURACIL
     Dosage: 2400 MG/M2, QOW
     Route: 041
     Dates: start: 20190208, end: 20190322
  18. 5-FU [FLUOROURACIL] [Concomitant]
     Active Substance: FLUOROURACIL
     Dosage: 2400 MG/M2, Q3W
     Route: 041
     Dates: start: 20191101
  19. AFLIBERCEPT [Suspect]
     Active Substance: AFLIBERCEPT
     Dosage: 4 MG/KG, 1X
     Route: 041
     Dates: start: 20181215, end: 20181215
  20. LEUCOVORIN [CALCIUM FOLINATE] [Concomitant]
     Active Substance: LEUCOVORIN
     Dosage: 200 MG/M2, QOW
     Route: 065
     Dates: start: 20190719, end: 20190830
  21. IRINOTECAN HYDROCHLORIDE. [Concomitant]
     Active Substance: IRINOTECAN HYDROCHLORIDE
     Dosage: 120 MG/M2, 1X
     Route: 065
     Dates: start: 20191018, end: 20191018
  22. 5-FU [FLUOROURACIL] [Concomitant]
     Active Substance: FLUOROURACIL
     Indication: COLON CANCER
     Dosage: 400 MG/M2, 1X
     Route: 040
     Dates: start: 20181215, end: 20181215
  23. 5-FU [FLUOROURACIL] [Concomitant]
     Active Substance: FLUOROURACIL
     Dosage: 400 MG/M2, QOW
     Route: 040
     Dates: start: 20190104, end: 20190118
  24. 5-FU [FLUOROURACIL] [Concomitant]
     Active Substance: FLUOROURACIL
     Dosage: 400 MG/M2, QOW
     Route: 040
     Dates: start: 20190412, end: 20190607
  25. 5-FU [FLUOROURACIL] [Concomitant]
     Active Substance: FLUOROURACIL
     Dosage: 400 MG/M2, QOW
     Route: 040
     Dates: start: 20190719, end: 20190830
  26. 5-FU [FLUOROURACIL] [Concomitant]
     Active Substance: FLUOROURACIL
     Dosage: 400 MG/M2, 1X
     Route: 040
     Dates: start: 20191018, end: 20191018
  27. LEUCOVORIN [CALCIUM FOLINATE] [Concomitant]
     Active Substance: LEUCOVORIN
     Dosage: 200 MG/M2, 1X
     Route: 065
     Dates: start: 20191018, end: 20191018
  28. IRINOTECAN HYDROCHLORIDE. [Concomitant]
     Active Substance: IRINOTECAN HYDROCHLORIDE
     Dosage: 120 MG/M2, QOW
     Route: 065
     Dates: start: 20190719, end: 20190830
  29. 5-FU [FLUOROURACIL] [Concomitant]
     Active Substance: FLUOROURACIL
     Dosage: 2400 MG/M2, 1X
     Route: 041
     Dates: start: 20181215, end: 20181215
  30. 5-FU [FLUOROURACIL] [Concomitant]
     Active Substance: FLUOROURACIL
     Dosage: 2400 MG/M2, QOW
     Route: 041
     Dates: start: 20190104, end: 20190118
  31. 5-FU [FLUOROURACIL] [Concomitant]
     Active Substance: FLUOROURACIL
     Dosage: 2400 MG/M2, 1X
     Route: 041
     Dates: start: 20190628, end: 20190628
  32. 5-FU [FLUOROURACIL] [Concomitant]
     Active Substance: FLUOROURACIL
     Dosage: 2400 MG/M2, 1X
     Route: 041
     Dates: start: 20190924, end: 20190924
  33. LEUCOVORIN [CALCIUM FOLINATE] [Concomitant]
     Active Substance: LEUCOVORIN
     Indication: COLON CANCER
     Dosage: 200 MG/M2, 1X
     Route: 065
     Dates: start: 20181215, end: 20181215
  34. LEUCOVORIN [CALCIUM FOLINATE] [Concomitant]
     Active Substance: LEUCOVORIN
     Dosage: 200 MG/M2, QOW
     Route: 065
     Dates: start: 20190104, end: 20190118
  35. IRINOTECAN HYDROCHLORIDE. [Concomitant]
     Active Substance: IRINOTECAN HYDROCHLORIDE
     Dosage: 120 MG/M2, QOW
     Route: 065
     Dates: start: 20190412, end: 20190607
  36. LEUCOVORIN [CALCIUM FOLINATE] [Concomitant]
     Active Substance: LEUCOVORIN
     Dosage: 200 MG/M2, 1X
     Route: 065
     Dates: start: 20190924, end: 20190924
  37. IRINOTECAN HYDROCHLORIDE. [Concomitant]
     Active Substance: IRINOTECAN HYDROCHLORIDE
     Dosage: 120 MG/M2, QOW
     Route: 065
     Dates: start: 20190104, end: 20190118
  38. IRINOTECAN HYDROCHLORIDE. [Concomitant]
     Active Substance: IRINOTECAN HYDROCHLORIDE
     Dosage: 120 MG/M2, 1X
     Route: 065
     Dates: start: 20190924, end: 20190924
  39. 5-FU [FLUOROURACIL] [Concomitant]
     Active Substance: FLUOROURACIL
     Dosage: 2400 MG/M2, QOW
     Route: 041
     Dates: start: 20190412, end: 20190607

REACTIONS (1)
  - No adverse event [Unknown]
